FAERS Safety Report 9831492 (Version 1)
Quarter: 2014Q1

REPORT INFORMATION
  Report Type: Spontaneous
  Country: FR (occurrence: FR)
  Receive Date: 20140121
  Receipt Date: 20140121
  Transmission Date: 20141002
  Serious: Yes (Hospitalization)
  Sender: FDA-Public Use
  Company Number: FR-ROCHE-1334268

PATIENT
  Age: 66 Year
  Sex: Male

DRUGS (9)
  1. VALIUM [Suspect]
     Indication: AGITATION
     Route: 048
     Dates: start: 20130814, end: 20130819
  2. VALIUM [Suspect]
     Indication: AGITATION
     Route: 058
     Dates: start: 20130814, end: 20130819
  3. CARDENSIEL [Concomitant]
     Route: 048
  4. COVERAM [Concomitant]
     Dosage: 10MG/10MG
     Route: 048
  5. TAHOR [Concomitant]
     Route: 048
  6. LASILIX [Concomitant]
     Route: 048
  7. KARDEGIC [Concomitant]
     Route: 048
  8. NOVONORM [Concomitant]
  9. LANTUS [Concomitant]

REACTIONS (1)
  - Coma [Recovered/Resolved]
